FAERS Safety Report 7413751-1 (Version None)
Quarter: 2011Q2

REPORT INFORMATION
  Report Type: 
  Country: None (occurrence: None)
  Receive Date: 20110413
  Receipt Date: 20110408
  Transmission Date: 20111010
  Serious: Yes (Hospitalization)
  Sender: FDA-Public Use
  Company Number: JP-SANOFI-AVENTIS-2011SA021576

PATIENT
  Age: 56 Year
  Sex: Male

DRUGS (5)
  1. LIPIDIL [Concomitant]
     Route: 048
  2. KERLONG [Suspect]
     Route: 048
  3. LASIX [Suspect]
     Route: 048
  4. AMLODIPINE BESILATE [Concomitant]
     Route: 048
  5. ALLOPURINOL [Concomitant]
     Route: 048

REACTIONS (1)
  - HEPATITIS [None]
